FAERS Safety Report 7304424-4 (Version None)
Quarter: 2011Q1

REPORT INFORMATION
  Report Type: 
  Country: None (occurrence: None)
  Receive Date: 20110221
  Receipt Date: 20110210
  Transmission Date: 20110831
  Serious: Yes (Death)
  Sender: FDA-Public Use
  Company Number: RU-ASTRAZENECA-2010SE58767

PATIENT
  Age: 32 Year
  Sex: Female

DRUGS (3)
  1. MEROPENABOL [Concomitant]
     Indication: POSTPARTUM SEPSIS
     Route: 042
     Dates: start: 20101201, end: 20101201
  2. CEFEPIME [Concomitant]
     Indication: POSTPARTUM SEPSIS
     Route: 042
     Dates: start: 20101201, end: 20101201
  3. MERONEM [Suspect]
     Indication: POSTPARTUM SEPSIS
     Route: 042
     Dates: start: 20101201

REACTIONS (1)
  - POSTPARTUM SEPSIS [None]
